FAERS Safety Report 21703407 (Version 1)
Quarter: 2022Q4

REPORT INFORMATION
  Report Type: Report from Study
  Country: US (occurrence: US)
  Receive Date: 20221209
  Receipt Date: 20221209
  Transmission Date: 20230112
  Serious: No
  Sender: FDA-Public Use
  Company Number: US-ABBVIE-4181953

PATIENT
  Age: 32 Year
  Sex: Male

DRUGS (1)
  1. HUMIRA [Suspect]
     Active Substance: ADALIMUMAB
     Indication: Hidradenitis
     Dosage: FORM STRENGTH 40 MILLIGRAM
     Route: 058

REACTIONS (5)
  - SARS-CoV-2 test positive [Recovering/Resolving]
  - Anosmia [Unknown]
  - Sinus congestion [Unknown]
  - Rhinorrhoea [Unknown]
  - Ageusia [Unknown]

NARRATIVE: CASE EVENT DATE: 20221022
